FAERS Safety Report 10089542 (Version 1)
Quarter: 2014Q2

REPORT INFORMATION
  Report Type: Spontaneous
  Country: US (occurrence: None)
  Receive Date: 20140418
  Receipt Date: 20140418
  Transmission Date: 20141212
  Serious: Yes (Other)
  Sender: FDA-Public Use
  Company Number: None

PATIENT
  Age: 69 Year
  Sex: Female

DRUGS (3)
  1. FORTEO [Suspect]
     Route: 058
     Dates: start: 20130512
  2. LANSOPRAZOLE [Concomitant]
  3. METOCLOPRAMIDE [Concomitant]

REACTIONS (2)
  - Staphylococcal infection [None]
  - Injection site infection [None]
